FAERS Safety Report 5644097-X (Version None)
Quarter: 2008Q1

REPORT INFORMATION
  Report Type: 
  Country: None (occurrence: None)
  Receive Date: 20080226
  Receipt Date: 20080213
  Transmission Date: 20080703
  Serious: Yes (Other)
  Sender: FDA-Public Use
  Company Number: 2008004086

PATIENT
  Sex: Female

DRUGS (1)
  1. LISTERINE WHITENING PRE-BRUSH RINSE (NO ACTIVE INGREDIENT) [Suspect]
     Dosage: ONCE DAILY (1 IN 1 D), ORAL
     Route: 048
     Dates: start: 20080101, end: 20080131

REACTIONS (1)
  - ORAL DISORDER [None]
